FAERS Safety Report 8327443-8 (Version None)
Quarter: 2012Q2

REPORT INFORMATION
  Report Type: 
  Country: None (occurrence: None)
  Receive Date: 20120423
  Receipt Date: 20120417
  Transmission Date: 20120825
  Serious: Yes (Other)
  Sender: FDA-Public Use
  Company Number: 2012032018

PATIENT
  Sex: Female

DRUGS (2)
  1. HIZENTRA [Suspect]
     Dosage: SUBCUTANEOUS, (120 MG 1X/3 WEEKS SUBCUTANEOUS)
     Route: 058
     Dates: start: 20100101
  2. HIZENTRA [Suspect]
     Dosage: SUBCUTANEOUS, (120 MG 1X/3 WEEKS SUBCUTANEOUS)
     Route: 058
     Dates: start: 20120101

REACTIONS (3)
  - EAR PAIN [None]
  - EAR INFECTION [None]
  - HYPOACUSIS [None]
